FAERS Safety Report 8785781 (Version 2)
Quarter: 2012Q4

REPORT INFORMATION
  Report Type: 
  Country: US (occurrence: US)
  Receive Date: 20120914
  Receipt Date: 20121127
  Transmission Date: 20130627
  Serious: Yes (Other)
  Sender: FDA-Public Use
  Company Number: US-BAYER-2012-095008

PATIENT
  Age: 39 Year
  Sex: Female
  Weight: 86.17 kg

DRUGS (13)
  1. OCELLA [Suspect]
     Indication: BIRTH CONTROL
     Dosage: UNK
     Dates: start: 2001, end: 2010
  2. OCELLA [Suspect]
     Indication: ACNE
  3. OCELLA [Suspect]
     Indication: PREMENSTRUAL SYNDROME
  4. YAZ [Suspect]
     Indication: BIRTH CONTROL
     Dosage: UNK
     Dates: start: 2001, end: 2010
  5. YAZ [Suspect]
     Indication: ACNE
  6. YAZ [Suspect]
     Indication: PREMENSTRUAL SYNDROME
  7. YASMIN [Suspect]
     Indication: BIRTH CONTROL
     Dosage: UNK
     Dates: start: 2001, end: 2010
  8. YASMIN [Suspect]
     Indication: ACNE
  9. YASMIN [Suspect]
     Indication: PREMENSTRUAL SYNDROME
  10. AUGMENTIN [Concomitant]
     Dosage: UNK
     Dates: start: 20100823
  11. AMOXICILLIN [Concomitant]
     Dosage: UNK
     Dates: start: 20100823
  12. PROVENTIL [Concomitant]
     Indication: ASTHMA
     Dosage: UNK
     Dates: start: 20100823
  13. PROMETHAZINE W/CODEINE [Concomitant]
     Dosage: UNK
     Dates: start: 20100823

REACTIONS (7)
  - Deep vein thrombosis [None]
  - Thrombophlebitis superficial [None]
  - Thrombophlebitis superficial [None]
  - Injury [None]
  - Pain [None]
  - Fear of disease [None]
  - Pain [None]
